FAERS Safety Report 14817138 (Version 2)
Quarter: 2018Q2

REPORT INFORMATION
  Report Type: Spontaneous
  Country: JP (occurrence: JP)
  Receive Date: 20180426
  Receipt Date: 20180504
  Transmission Date: 20180711
  Serious: Yes (Other)
  Sender: FDA-Public Use
  Company Number: PHJP2018JP009402

PATIENT
  Sex: Female

DRUGS (20)
  1. SYMMETREL [Suspect]
     Active Substance: AMANTADINE HYDROCHLORIDE
     Indication: PARKINSON^S DISEASE
     Dosage: 50 MG/TIME, BID (AFTER BREAKFAST AND SUPPER)
     Route: 048
  2. MENESIT [Concomitant]
     Active Substance: CARBIDOPA\LEVODOPA
     Dosage: 50MG/TIME, TID (BEFORE MEALS); 100 MG AT 15:00 HRS, 50 MG AT 02:00 HRS
     Route: 048
  3. STALEVO [Suspect]
     Active Substance: CARBIDOPA\ENTACAPONE\LEVODOPA
     Indication: PARKINSON^S DISEASE
     Dosage: 0.5 DF (LEVODOPA 100 MG, CARBIDOPA 10 MG, ENTACAPONE 100 MG), TID (AFTER EACH MEAL)
     Route: 065
  4. STALEVO [Suspect]
     Active Substance: CARBIDOPA\ENTACAPONE\LEVODOPA
     Dosage: 1 DF, UNK
     Route: 065
  5. NOURIAST [Concomitant]
     Active Substance: ISTRADEFYLLINE
     Indication: PRODUCT USED FOR UNKNOWN INDICATION
     Dosage: 40 MG, QD (AFTER LUNCH)
     Route: 048
  6. STALEVO [Suspect]
     Active Substance: CARBIDOPA\ENTACAPONE\LEVODOPA
     Dosage: 1 DF, UNK
     Route: 065
  7. NEUPRO [Concomitant]
     Active Substance: ROTIGOTINE
     Indication: PRODUCT USED FOR UNKNOWN INDICATION
     Dosage: 9 MG, QD
     Route: 062
  8. MENESIT [Concomitant]
     Active Substance: CARBIDOPA\LEVODOPA
     Dosage: 50 MG, WHEN NECESSARY, AT THE TIME OF HAVING MOVEMENT DIFFICULTIES
     Route: 048
  9. PAXIL [Concomitant]
     Active Substance: PAROXETINE HYDROCHLORIDE
     Indication: PRODUCT USED FOR UNKNOWN INDICATION
     Dosage: 5 MG, QD (AFTER SUPPER)
     Route: 048
  10. TRERIEF [Concomitant]
     Active Substance: ZONISAMIDE
     Indication: PRODUCT USED FOR UNKNOWN INDICATION
     Dosage: 25 MG, QD (AFTER BREAKFAST)
     Route: 048
  11. HIRUDOID [Concomitant]
     Active Substance: GLYCOSAMINOGLYCANS
     Indication: PRODUCT USED FOR UNKNOWN INDICATION
     Dosage: UNK
     Route: 062
  12. COMTAN [Suspect]
     Active Substance: ENTACAPONE
     Indication: THERAPEUTIC RESPONSE SHORTENED
     Dosage: 100 MG/TIME, TID (ON AWAKENING, AFTER BREAKFAST AND LUNCH, AT 15:00 HRS)
     Route: 048
  13. MENESIT [Concomitant]
     Active Substance: CARBIDOPA\LEVODOPA
     Dosage: 50MG/TIME, TID (BEFORE MEALS); 50MG/TIME, TID (AFTER MEALS); 50 MG AT 15:00 HRS, 50 MG AT 16:00 HRS,
     Route: 048
  14. MENESIT [Concomitant]
     Active Substance: CARBIDOPA\LEVODOPA
     Indication: PRODUCT USED FOR UNKNOWN INDICATION
     Dosage: 150MG/TIME, TID (AFTER MEALS); 50 MG ON AWAKENING, 100 MG AT 15:00 HRS
     Route: 048
  15. WYPAX [Concomitant]
     Active Substance: LORAZEPAM
     Indication: PRODUCT USED FOR UNKNOWN INDICATION
     Dosage: 0.5 MG, QD (AT BEDTIME)
     Route: 048
  16. DOPACOL [Concomitant]
     Active Substance: CARBIDOPA\LEVODOPA
     Indication: PRODUCT USED FOR UNKNOWN INDICATION
     Dosage: 50 MG, TID (AFTER MEALS); 25 MG AT 02:00 HRS
     Route: 048
  17. REQUIP [Concomitant]
     Active Substance: ROPINIROLE HYDROCHLORIDE
     Dosage: 16 MG, QD (AFTER BREAKFAST)
     Route: 048
  18. COMTAN [Suspect]
     Active Substance: ENTACAPONE
     Indication: PARKINSON^S DISEASE
     Dosage: 100 MG/TIME, BID (AT 15:00 AND 02:00 HRS)
     Route: 048
  19. MENESIT [Concomitant]
     Active Substance: CARBIDOPA\LEVODOPA
     Dosage: 50MG/TIME, TID (BEFORE MEALS)
     Route: 048
  20. REQUIP [Concomitant]
     Active Substance: ROPINIROLE HYDROCHLORIDE
     Indication: PRODUCT USED FOR UNKNOWN INDICATION
     Dosage: 14 MG, QD (AFTER BREAKFAST)
     Route: 048

REACTIONS (9)
  - Akinesia [Unknown]
  - Dyskinesia [Unknown]
  - Parkinson^s disease [Unknown]
  - Constipation [Unknown]
  - Hyperkeratosis [Unknown]
  - Foot deformity [Unknown]
  - Middle insomnia [Unknown]
  - Dermatitis [Unknown]
  - Gait disturbance [Unknown]
